FAERS Safety Report 14246527 (Version 4)
Quarter: 2018Q1

REPORT INFORMATION
  Report Type: Spontaneous
  Country: BR (occurrence: BR)
  Receive Date: 20171204
  Receipt Date: 20180115
  Transmission Date: 20180508
  Serious: Yes (Other)
  Sender: FDA-Public Use
  Company Number: PHHY2017BR176183

PATIENT
  Sex: Male
  Weight: 102 kg

DRUGS (1)
  1. EXELON PATCH [Suspect]
     Active Substance: RIVASTIGMINE
     Indication: DEMENTIA ALZHEIMER^S TYPE
     Dosage: 13.3 MG QD(PATCH 15 (CM2), 27 MG RIVASTIGMINE BASE)
     Route: 062

REACTIONS (11)
  - Monoplegia [Not Recovered/Not Resolved]
  - Agitation [Recovering/Resolving]
  - Drug dependence [Unknown]
  - Dysphagia [Not Recovered/Not Resolved]
  - Product adhesion issue [Unknown]
  - Mastication disorder [Not Recovered/Not Resolved]
  - Memory impairment [Not Recovered/Not Resolved]
  - Loss of control of legs [Not Recovered/Not Resolved]
  - Speech disorder [Recovering/Resolving]
  - Aggression [Recovering/Resolving]
  - Cerebrovascular accident [Not Recovered/Not Resolved]
